FAERS Safety Report 11689112 (Version 1)
Quarter: 2015Q4

REPORT INFORMATION
  Report Type: Spontaneous
  Country: US (occurrence: US)
  Receive Date: 20151102
  Receipt Date: 20151102
  Transmission Date: 20160304
  Serious: Yes (Other)
  Sender: FDA-Public Use
  Company Number: US-ROCHE-1653003

PATIENT
  Sex: Female

DRUGS (1)
  1. XOLAIR [Suspect]
     Active Substance: OMALIZUMAB
     Indication: PRODUCT USED FOR UNKNOWN INDICATION
     Route: 065

REACTIONS (7)
  - Spleen atrophy [Unknown]
  - Hepatic steatosis [Unknown]
  - Swelling [Unknown]
  - Pulmonary mass [Unknown]
  - Hepatomegaly [Unknown]
  - Splenic calcification [Unknown]
  - Weight increased [Unknown]
